FAERS Safety Report 16123212 (Version 3)
Quarter: 2019Q2

REPORT INFORMATION
  Report Type: Spontaneous
  Country: NZ (occurrence: NZ)
  Receive Date: 20190327
  Receipt Date: 20190527
  Transmission Date: 20190711
  Serious: Yes (Life-Threatening, Hospitalization, Other)
  Sender: FDA-Public Use
  Company Number: NZ-PFIZER INC-2019124188

PATIENT
  Age: 4 Year
  Sex: Male
  Weight: 20 kg

DRUGS (10)
  1. AMIODARONE [Suspect]
     Active Substance: AMIODARONE
     Indication: CARDIAC ARREST
     Dosage: 10 UG/KG, UNK
  2. EPINEPHRINE. [Suspect]
     Active Substance: EPINEPHRINE
     Dosage: 0.05 UG/KG/MIN
     Route: 040
  3. EPINEPHRINE. [Suspect]
     Active Substance: EPINEPHRINE
     Dosage: 0.2 UNK, (10 MINUTES LATER)
     Route: 040
  4. SALINE [SODIUM CHLORIDE] [Concomitant]
     Active Substance: SODIUM CHLORIDE
     Indication: CARDIAC ARREST
     Dosage: UNK
     Route: 040
  5. MAGNESIUM [Concomitant]
     Active Substance: MAGNESIUM
     Indication: CARDIAC ARREST
     Dosage: UNK
     Route: 042
  6. EPINEPHRINE. [Suspect]
     Active Substance: EPINEPHRINE
     Dosage: 0.2 MG, UNK
     Route: 040
  7. LIGNOCAINE [LIDOCAINE] [Concomitant]
     Indication: CARDIAC ARREST
     Dosage: UNK
     Route: 042
  8. EPINEPHRINE. [Suspect]
     Active Substance: EPINEPHRINE
     Dosage: 0.5 UG/KG, UNK, (0.5 UG/KG/MIN)
     Route: 040
  9. EPINEPHRINE. [Suspect]
     Active Substance: EPINEPHRINE
     Indication: CARDIAC ARREST
     Dosage: 0.2 MG, UNK FIRST BOLUS (0.01 MG/KG))
     Route: 040
  10. EPINEPHRINE. [Suspect]
     Active Substance: EPINEPHRINE
     Indication: PULSELESS ELECTRICAL ACTIVITY
     Dosage: 0.2 MG, UNK (3 AND 7 MINUTES LATER)
     Route: 040

REACTIONS (11)
  - Sinus bradycardia [Recovering/Resolving]
  - Ventricular extrasystoles [Recovered/Resolved]
  - Ventricular extrasystoles [Recovering/Resolving]
  - Hypoxia [Unknown]
  - Drug ineffective [Recovering/Resolving]
  - Heart rate increased [Recovering/Resolving]
  - Ventricular fibrillation [Recovered/Resolved]
  - Ventricular tachycardia [Recovered/Resolved]
  - Poor peripheral circulation [Recovering/Resolving]
  - Cardiac arrest [Recovering/Resolving]
  - Metabolic acidosis [Recovering/Resolving]
